FAERS Safety Report 4926121-2 (Version None)
Quarter: 2006Q1

REPORT INFORMATION
  Report Type: 
  Country: None (occurrence: None)
  Receive Date: 20060228
  Receipt Date: 20050822
  Transmission Date: 20060701
  Serious: No
  Sender: FDA-Public Use
  Company Number: US-GLAXOSMITHKLINE-A0571257A

PATIENT
  Age: 66 Year
  Sex: Male

DRUGS (5)
  1. LAMICTAL [Suspect]
     Dosage: 100MG TWICE PER DAY
     Route: 048
  2. LAMICTAL [Suspect]
     Dosage: 50MG IN THE MORNING
     Route: 048
  3. LAMICTAL [Suspect]
     Dosage: 100MG AT NIGHT
     Route: 048
  4. KEPPRA [Concomitant]
  5. LIPITOR [Concomitant]

REACTIONS (1)
  - CLUMSINESS [None]
